FAERS Safety Report 9856991 (Version 1)
Quarter: 2014Q1

REPORT INFORMATION
  Report Type: Spontaneous
  Country: FR (occurrence: None)
  Receive Date: 20140128
  Receipt Date: 20140128
  Transmission Date: 20141002
  Serious: No
  Sender: FDA-Public Use
  Company Number: 2014000011

PATIENT
  Age: 75 Year
  Sex: Male

DRUGS (6)
  1. ACEON [Suspect]
     Indication: HYPERTENSION
     Route: 048
     Dates: start: 20130604, end: 20131108
  2. AFINITOR (EVEROLIMUS) [Suspect]
     Indication: NEUROENDOCRINE TUMOUR
     Route: 048
     Dates: start: 201304, end: 20131208
  3. FUROSEMIDE (FUROSEMIDE) [Concomitant]
  4. VICTAN (ETHY LOFLAZEPATE) [Concomitant]
  5. LEVOTHYROX (LEVOTHYROXINE SODIUM) [Concomitant]
  6. INIPOMP )PANTOPRAZOLE SODIUM) [Concomitant]

REACTIONS (3)
  - Oedema peripheral [None]
  - Angioedema [None]
  - Aphonia [None]
